FAERS Safety Report 10668951 (Version 2)
Quarter: 2015Q1

REPORT INFORMATION
  Report Type: Spontaneous
  Country: FR (occurrence: FR)
  Receive Date: 20141222
  Receipt Date: 20150320
  Transmission Date: 20150720
  Serious: Yes (Disabling)
  Sender: FDA-Public Use
  Company Number: FR-ASTRAZENECA-2014SE97911

PATIENT
  Age: 21160 Day
  Sex: Female
  Weight: 61 kg

DRUGS (1)
  1. ARIMIDEX [Suspect]
     Active Substance: ANASTROZOLE
     Indication: BREAST CANCER FEMALE
     Route: 048
     Dates: start: 20140427

REACTIONS (2)
  - Dry eye [Not Recovered/Not Resolved]
  - Punctate keratitis [Not Recovered/Not Resolved]

NARRATIVE: CASE EVENT DATE: 201406
